FAERS Safety Report 9282324 (Version 1)
Quarter: 2013Q2

REPORT INFORMATION
  Report Type: Spontaneous
  Country: US (occurrence: None)
  Receive Date: 20130509
  Receipt Date: 20130509
  Transmission Date: 20140414
  Serious: No
  Sender: FDA-Public Use
  Company Number: None

PATIENT
  Age: 76 Year
  Sex: Male
  Weight: 54.43 kg

DRUGS (1)
  1. HYDROCODONE [Suspect]
     Indication: BACK PAIN
     Dosage: 3-4 DOSES DAY FREQUENCY

REACTIONS (3)
  - Dyspnoea [None]
  - Tablet physical issue [None]
  - Foreign body [None]
